FAERS Safety Report 5873860-5 (Version None)
Quarter: 2008Q3

REPORT INFORMATION
  Report Type: 
  Country: None (occurrence: None)
  Receive Date: 20080903
  Receipt Date: 20080903
  Transmission Date: 20090109
  Serious: Yes (Life-Threatening)
  Sender: FDA-Public Use
  Company Number: None

PATIENT
  Sex: Female
  Weight: 108.8633 kg

DRUGS (1)
  1. LEVAQUIN [Suspect]
     Indication: BRONCHITIS
     Dosage: 750MG  1 DAILY PO
     Route: 048
     Dates: start: 20071020, end: 20071021

REACTIONS (5)
  - CONDITION AGGRAVATED [None]
  - CONVULSION [None]
  - PALPITATIONS [None]
  - PANIC ATTACK [None]
  - TREMOR [None]
